FAERS Safety Report 10177159 (Version 1)
Quarter: 2014Q2

REPORT INFORMATION
  Report Type: Spontaneous
  Country: US (occurrence: None)
  Receive Date: 20140515
  Receipt Date: 20140515
  Transmission Date: 20141212
  Serious: Yes (Other)
  Sender: FDA-Public Use
  Company Number: None

PATIENT
  Age: 51 Year
  Sex: Male

DRUGS (3)
  1. OLYSIO [Suspect]
     Indication: HEPATITIS C
     Route: 048
     Dates: start: 20140321
  2. SOVELDI [Concomitant]
  3. SCEATLACHED [Concomitant]

REACTIONS (3)
  - Photosensitivity reaction [None]
  - Headache [None]
  - Visual acuity reduced [None]
